FAERS Safety Report 20167486 (Version 1)
Quarter: 2021Q4

REPORT INFORMATION
  Report Type: Spontaneous
  Country: BR (occurrence: BR)
  Receive Date: 20211209
  Receipt Date: 20211209
  Transmission Date: 20220303
  Serious: Yes (Other)
  Sender: FDA-Public Use
  Company Number: BR-BAXTER-2021BAX038626

PATIENT
  Age: 40 Year
  Sex: Female
  Weight: 62.2 kg

DRUGS (7)
  1. GENUXAL [Suspect]
     Active Substance: CYCLOPHOSPHAMIDE
     Indication: Breast cancer female
     Dosage: 3 CYCLES; GENUXAL DILUTED IN SODIUM CHLORIDE 0.9% PER 30 MINUTES
     Route: 042
     Dates: start: 20210927
  2. GENUXAL [Suspect]
     Active Substance: CYCLOPHOSPHAMIDE
     Dosage: LAST INFUSION BEFORE AE
     Route: 042
     Dates: start: 20211103, end: 20211103
  3. SODIUM CHLORIDE [Suspect]
     Active Substance: SODIUM CHLORIDE
     Indication: Medication dilution
     Dosage: GENUXAL DILUTED IN SODIUM CHLORIDE 0.9% PER 30 MINUTES
     Route: 042
     Dates: start: 20210927
  4. SODIUM CHLORIDE [Suspect]
     Active Substance: SODIUM CHLORIDE
     Dosage: GENUXAL DILUTED IN SODIUM CHLORIDE 0.9%?LAST INFUSION BEFORE AE
     Route: 042
     Dates: start: 20211103, end: 20211103
  5. FOSAPREPITANT [Concomitant]
     Active Substance: FOSAPREPITANT
     Indication: Product used for unknown indication
     Route: 065
  6. DEXAMETHASONE [Concomitant]
     Active Substance: DEXAMETHASONE
     Indication: Product used for unknown indication
     Route: 065
  7. PALONOSETRON [Concomitant]
     Active Substance: PALONOSETRON
     Indication: Product used for unknown indication
     Route: 065

REACTIONS (1)
  - Neutropenia [Recovered/Resolved]

NARRATIVE: CASE EVENT DATE: 20211113
